FAERS Safety Report 15607228 (Version 2)
Quarter: 2018Q4

REPORT INFORMATION
  Report Type: Spontaneous
  Country: GB (occurrence: GB)
  Receive Date: 20181112
  Receipt Date: 20181116
  Transmission Date: 20190205
  Serious: Yes (Hospitalization)
  Sender: FDA-Public Use
  Company Number: GB-MYLANLABS-2018M1085601

PATIENT
  Age: 52 Year
  Sex: Male

DRUGS (1)
  1. CLOZARIL [Suspect]
     Active Substance: CLOZAPINE
     Indication: SCHIZOPHRENIA
     Dosage: 300 MG, UNK
     Route: 048
     Dates: start: 20181017, end: 20181106

REACTIONS (6)
  - C-reactive protein increased [Unknown]
  - Hyperhidrosis [Unknown]
  - Sedation [Unknown]
  - Malaise [Unknown]
  - Foreign body in gastrointestinal tract [Unknown]
  - Body temperature increased [Unknown]

NARRATIVE: CASE EVENT DATE: 2018
